FAERS Safety Report 13520877 (Version 1)
Quarter: 2017Q2

REPORT INFORMATION
  Report Type: Spontaneous
  Country: US (occurrence: US)
  Receive Date: 20170508
  Receipt Date: 20170508
  Transmission Date: 20170830
  Serious: Yes (Other)
  Sender: FDA-Public Use
  Company Number: US-009507513-1705USA002491

PATIENT
  Age: 56 Year
  Sex: Male

DRUGS (1)
  1. LOVASTATIN. [Suspect]
     Active Substance: LOVASTATIN
     Route: 048

REACTIONS (3)
  - Rib excision [Unknown]
  - Cardiac arrest [Unknown]
  - Muscle spasms [Unknown]
